FAERS Safety Report 23855089 (Version 1)
Quarter: 2024Q2

REPORT INFORMATION
  Report Type: Spontaneous
  Country: US (occurrence: US)
  Receive Date: 20240514
  Receipt Date: 20240514
  Transmission Date: 20240716
  Serious: No
  Sender: FDA-Public Use
  Company Number: US-SA-SAC20240506000255

PATIENT
  Sex: Female

DRUGS (3)
  1. DUPIXENT [Suspect]
     Active Substance: DUPILUMAB
     Dosage: UNK
     Route: 058
     Dates: start: 202208
  2. CALCIUM [Concomitant]
     Active Substance: CALCIUM
     Dosage: 500 MG
  3. MUPIROCIN [Concomitant]
     Active Substance: MUPIROCIN
     Dosage: 250 MG

REACTIONS (5)
  - Fibromyalgia [Unknown]
  - Weight increased [Unknown]
  - Pruritus [Unknown]
  - Therapeutic response shortened [Unknown]
  - Arthralgia [Unknown]
